FAERS Safety Report 10190328 (Version 1)
Quarter: 2014Q2

REPORT INFORMATION
  Report Type: Spontaneous
  Country: US (occurrence: US)
  Receive Date: 20140522
  Receipt Date: 20140522
  Transmission Date: 20141212
  Serious: Yes (Other)
  Sender: FDA-Public Use
  Company Number: US-ASTRAZENECA-2014SE33429

PATIENT
  Age: 64 Year
  Sex: Female

DRUGS (3)
  1. CRESTOR [Suspect]
     Route: 048
     Dates: start: 2012
  2. NSAIDS [Concomitant]
  3. OTHER MEDICATIONS [Concomitant]

REACTIONS (1)
  - Renal failure chronic [Unknown]
